FAERS Safety Report 6358395-8 (Version None)
Quarter: 2009Q3

REPORT INFORMATION
  Report Type: 
  Country: None (occurrence: None)
  Receive Date: 20090916
  Receipt Date: 20090915
  Transmission Date: 20100115
  Serious: No
  Sender: FDA-Public Use
  Company Number: FR-EISAI INC.-E2020-05202-SPO-FR

PATIENT
  Sex: Male

DRUGS (4)
  1. ARICEPT [Suspect]
     Indication: DRUG USE FOR UNKNOWN INDICATION
     Dates: start: 20090630, end: 20090723
  2. ATHYMIL [Suspect]
     Indication: DRUG USE FOR UNKNOWN INDICATION
     Route: 048
     Dates: start: 20090601, end: 20090723
  3. CARRAGHENATES [Suspect]
     Indication: DRUG USE FOR UNKNOWN INDICATION
     Route: 054
     Dates: start: 20090722, end: 20090723
  4. DAFLON (^FLAVONOID FRACTION^) [Suspect]
     Indication: DRUG USE FOR UNKNOWN INDICATION
     Route: 048
     Dates: start: 20090723, end: 20090723

REACTIONS (2)
  - AGRANULOCYTOSIS [None]
  - OVERDOSE [None]
